FAERS Safety Report 4479508-9 (Version None)
Quarter: 2004Q4

REPORT INFORMATION
  Report Type: 
  Country: None (occurrence: None)
  Receive Date: 20041019
  Receipt Date: 20041005
  Transmission Date: 20050328
  Serious: Yes (Disabling)
  Sender: FDA-Public Use
  Company Number: 2004GB02339

PATIENT
  Age: 50 Year
  Sex: Male

DRUGS (4)
  1. CRESTOR [Suspect]
     Dosage: 10 MG QD PO
     Route: 048
     Dates: start: 20040101, end: 20040501
  2. ATORVASTATIN CALCIUM [Suspect]
     Dosage: 10 MG PO
     Route: 048
     Dates: start: 20041118, end: 20040101
  3. CERIVASTATIN [Suspect]
     Dosage: 0.4 MG PO
     Route: 048
     Dates: start: 20000101, end: 20000801
  4. FENOFIBRATE [Suspect]
     Dosage: 200 MG PO
     Route: 048
     Dates: start: 20000101, end: 20000801

REACTIONS (24)
  - ACTIVITIES OF DAILY LIVING IMPAIRED [None]
  - ARTHRALGIA [None]
  - ARTHRITIS [None]
  - AUTOIMMUNE DISORDER [None]
  - BACK PAIN [None]
  - BLOOD CREATINE PHOSPHOKINASE INCREASED [None]
  - CARPAL TUNNEL SYNDROME [None]
  - CLUBBING [None]
  - DRY SKIN [None]
  - IMPAIRED DRIVING ABILITY [None]
  - LIP HAEMORRHAGE [None]
  - MOVEMENT DISORDER [None]
  - MUSCLE ATROPHY [None]
  - MUSCLE INJURY [None]
  - MYALGIA [None]
  - NAIL PITTING [None]
  - NASOPHARYNGITIS [None]
  - NERVE INJURY [None]
  - PAIN [None]
  - PRURITUS [None]
  - PSORIATIC ARTHROPATHY [None]
  - PYREXIA [None]
  - SKIN BLEEDING [None]
  - WEIGHT DECREASED [None]
